FAERS Safety Report 25789634 (Version 1)
Quarter: 2025Q3

REPORT INFORMATION
  Report Type: Report from Study
  Country: CA (occurrence: CA)
  Receive Date: 20250911
  Receipt Date: 20250911
  Transmission Date: 20251020
  Serious: Yes (Other)
  Sender: TEVA
  Company Number: CA-TEVA-VS-3371847

PATIENT
  Age: 76 Year
  Sex: Female

DRUGS (1)
  1. ZOLEDRONIC ACID [Suspect]
     Active Substance: ZOLEDRONIC ACID
     Indication: Osteoporosis
     Dosage: DOSE FORM : SOLUTION INTRAVENOUS
     Route: 065

REACTIONS (5)
  - Tooth disorder [Unknown]
  - Groin pain [Unknown]
  - Pain in jaw [Unknown]
  - Pain in extremity [Unknown]
  - Heart rate irregular [Unknown]
